FAERS Safety Report 4488371-1 (Version None)
Quarter: 2004Q4

REPORT INFORMATION
  Report Type: 
  Country: None (occurrence: None)
  Receive Date: 20041028
  Receipt Date: 20041021
  Transmission Date: 20050328
  Serious: Yes (Death)
  Sender: FDA-Public Use
  Company Number: US-AMGEN-US096880

PATIENT
  Sex: Male

DRUGS (11)
  1. PROCRIT [Suspect]
     Indication: ANAEMIA
     Route: 058
     Dates: start: 20040801, end: 20041002
  2. PREDNISONE [Concomitant]
  3. REGLAN [Concomitant]
  4. LASIX [Concomitant]
  5. ZOCOR [Concomitant]
  6. AMBIEN [Concomitant]
  7. PLAVIX [Concomitant]
  8. LOPRESSOR [Concomitant]
  9. IMDUR [Concomitant]
  10. PREVACID [Concomitant]
  11. LANOXIN [Concomitant]

REACTIONS (1)
  - DEATH [None]
